FAERS Safety Report 8981413 (Version 1)
Quarter: 2012Q4

REPORT INFORMATION
  Report Type: 
  Country: US (occurrence: US)
  Receive Date: 20121221
  Receipt Date: 20121221
  Transmission Date: 20130627
  Serious: No
  Sender: FDA-Public Use
  Company Number: US-PFIZER INC-2012324794

PATIENT
  Age: 55 Year
  Sex: Male
  Weight: 63.49 kg

DRUGS (4)
  1. EFFEXOR [Suspect]
     Indication: DEPRESSION
     Dosage: 75 mg, UNK
     Dates: start: 2003
  2. EFFEXOR [Suspect]
     Dosage: 37.5 mg, UNK
  3. EFFEXOR [Suspect]
     Dosage: UNK
     Dates: end: 2005
  4. CYMBALTA [Suspect]
     Indication: DEPRESSION
     Dosage: 60 mg, daily
     Dates: start: 2004

REACTIONS (2)
  - Drug ineffective [Unknown]
  - Rash [Unknown]
